FAERS Safety Report 8375867-5 (Version None)
Quarter: 2012Q1

REPORT INFORMATION
  Report Type: 
  Country: None (occurrence: None)
  Receive Date: 20120323
  Receipt Date: 20110825
  Transmission Date: 20120608
  Serious: Yes (Hospitalization, Disabling)
  Sender: FDA-Public Use
  Company Number: 163-21880-11071161

PATIENT
  Age: 56 Year
  Sex: Female

DRUGS (19)
  1. KLOR-CON (POTASSIUM CHLORIDE) (TABLETS) [Concomitant]
  2. BACLOFEN (BACLOFEN) (TABLETS) [Concomitant]
  3. COLACE (DOCUSATE SODIUM) (CAPSULES) [Concomitant]
  4. MULTIVITAMINS (MULTIVITAMINS) (TABLETS) [Concomitant]
  5. FORTICAL (FORTICOL) (SPRAY (NOT INHALATION)) [Concomitant]
  6. DEXAMETHASONE [Concomitant]
  7. OXYCODONE HCL [Concomitant]
  8. VELCADE [Concomitant]
  9. HUMALOG [Concomitant]
  10. OXYCONTIN [Concomitant]
  11. FLEXERIL [Concomitant]
  12. LANTUS (INSULIN GLARGINE) (SOLUTION) [Concomitant]
  13. SENOKOT (SENNA FRUIT) (TABLETS) [Concomitant]
  14. OMEPRAZOLE [Concomitant]
  15. REVLIMID [Suspect]
     Indication: MULTIPLE MYELOMA
     Dosage: 25 MG, 1 IN 1 D, PO, 25 MG, X14 DAYS, PO
     Route: 048
     Dates: start: 20110705, end: 20110714
  16. REVLIMID [Suspect]
     Indication: MULTIPLE MYELOMA
     Dosage: 25 MG, 1 IN 1 D, PO, 25 MG, X14 DAYS, PO
     Route: 048
     Dates: start: 20110802
  17. LOVENOX [Concomitant]
  18. ZOFRAN (ONDANSETRON HYDROCHLORIDE) (SOLUTION) [Concomitant]
  19. HEPARIN SODIUM [Concomitant]

REACTIONS (7)
  - SPINAL FRACTURE [None]
  - RESPIRATORY DISTRESS [None]
  - WHITE BLOOD CELL COUNT DECREASED [None]
  - PNEUMONIA [None]
  - HAEMOGLOBIN DECREASED [None]
  - FOOD INTOLERANCE [None]
  - PLATELET COUNT INCREASED [None]
